FAERS Safety Report 9231118 (Version 1)
Quarter: 2013Q2

REPORT INFORMATION
  Report Type: Spontaneous
  Country: ZA (occurrence: ZA)
  Receive Date: 20130415
  Receipt Date: 20130415
  Transmission Date: 20140414
  Serious: Yes (Hospitalization)
  Sender: FDA-Public Use
  Company Number: PHHY2013ZA033988

PATIENT
  Age: 5 Year
  Sex: Female

DRUGS (8)
  1. CLOFAZIMINE [Suspect]
     Indication: PULMONARY TUBERCULOSIS
     Dosage: UNK UKN, UNK
  2. MOXIFLOXACIN [Suspect]
     Dosage: UNK UKN, UNK
  3. CLARITHROMYCIN [Suspect]
     Dosage: UNK UKN, UNK
  4. AMOXICILLIN + CLAVULANATE POTASSIUM [Suspect]
     Dosage: UNK UKN, UNK
  5. LINEZOLID [Suspect]
     Dosage: 300 MG, DAILY
  6. CAPREOMYCIN [Suspect]
     Indication: ANTIRETROVIRAL THERAPY
     Dosage: UNK UKN, UNK
  7. AMINOSALICYLIC ACID [Suspect]
     Dosage: UNK UKN, UNK
  8. TERIZIDONE [Suspect]
     Dosage: UKN

REACTIONS (2)
  - Pancreatitis [Recovered/Resolved]
  - Lactic acidosis [Recovered/Resolved]
